FAERS Safety Report 10596432 (Version 1)
Quarter: 2014Q4

REPORT INFORMATION
  Report Type: Spontaneous
  Country: BE (occurrence: BE)
  Receive Date: 20141120
  Receipt Date: 20141120
  Transmission Date: 20150529
  Serious: Yes (Other)
  Sender: FDA-Public Use
  Company Number: ALCN2014BE006404

PATIENT
  Age: 9 Day
  Sex: Female

DRUGS (3)
  1. PREDNISOLONE. [Suspect]
     Active Substance: PREDNISOLONE
     Indication: IRIDOCYCLITIS
     Dosage: 1 DF, QH
     Route: 047
  2. PHENYLEPHRINE HYDROCHLORIDE. [Suspect]
     Active Substance: PHENYLEPHRINE HYDROCHLORIDE
     Indication: IRIDOCYCLITIS
     Dosage: 1 DF, BID
     Route: 047
  3. ATROPINE SULFATE. [Suspect]
     Active Substance: ATROPINE SULFATE
     Indication: IRIDOCYCLITIS
     Dosage: 1 DF, BID
     Route: 047

REACTIONS (1)
  - Drug ineffective [Unknown]
